FAERS Safety Report 23690517 (Version 2)
Quarter: 2024Q2

REPORT INFORMATION
  Report Type: Other
  Country: GB (occurrence: GB)
  Receive Date: 20240401
  Receipt Date: 20240504
  Transmission Date: 20240716
  Serious: Yes (Life-Threatening, Disabling, Other)
  Sender: FDA-Public Use
  Company Number: None

PATIENT

DRUGS (4)
  1. ROSUVASTATIN CALCIUM [Suspect]
     Active Substance: ROSUVASTATIN CALCIUM
     Indication: Blood cholesterol increased
     Dosage: UNK UNK, OD (ONE AT NIGHT)
     Route: 065
     Dates: end: 202403
  2. AMITRIPTYLINE [Concomitant]
     Active Substance: AMITRIPTYLINE
     Indication: Sleep disorder
     Dosage: UNK
     Route: 065
     Dates: start: 2001, end: 2024
  3. AMITRIPTYLINE [Concomitant]
     Active Substance: AMITRIPTYLINE
     Indication: Depression
  4. AMLODIPINE [Concomitant]
     Active Substance: AMLODIPINE BESYLATE
     Indication: Hypertension
     Dosage: UNK
     Route: 065
     Dates: start: 2023, end: 2024

REACTIONS (3)
  - Completed suicide [Recovering/Resolving]
  - Suicidal ideation [Recovering/Resolving]
  - Psychopathic personality [Recovering/Resolving]

NARRATIVE: CASE EVENT DATE: 20240101
